FAERS Safety Report 11829342 (Version 2)
Quarter: 2015Q4

REPORT INFORMATION
  Report Type: Spontaneous
  Country: VE (occurrence: VE)
  Receive Date: 20151211
  Receipt Date: 20151218
  Transmission Date: 20160305
  Serious: Yes (Other)
  Sender: FDA-Public Use
  Company Number: PHHY2015VE162936

PATIENT
  Age: 42 Year
  Sex: Male

DRUGS (2)
  1. RITALIN [Suspect]
     Active Substance: METHYLPHENIDATE HYDROCHLORIDE
     Indication: AFFECTIVE DISORDER
     Dosage: 20 MG, QD
     Route: 048
     Dates: end: 20151208
  2. PROZAC [Concomitant]
     Active Substance: FLUOXETINE HYDROCHLORIDE
     Indication: DEPRESSION
     Dosage: 20 MG, QD
     Route: 065

REACTIONS (7)
  - Product use issue [Unknown]
  - Paralysis [Unknown]
  - Malaise [Not Recovered/Not Resolved]
  - Disturbance in attention [Unknown]
  - Communication disorder [Unknown]
  - Cognitive disorder [Unknown]
  - Anxiety [Unknown]

NARRATIVE: CASE EVENT DATE: 2008
